FAERS Safety Report 21612211 (Version 2)
Quarter: 2022Q4

REPORT INFORMATION
  Report Type: Report from Study
  Country: US (occurrence: US)
  Receive Date: 20221118
  Receipt Date: 20221125
  Transmission Date: 20230113
  Serious: Yes (Hospitalization, Other)
  Sender: FDA-Public Use
  Company Number: US-VALIDUS PHARMACEUTICALS LLC-US-VDP-2022-015805

PATIENT

DRUGS (4)
  1. BUMEX [Suspect]
     Active Substance: BUMETANIDE
     Indication: Cardiac failure
     Dosage: 1 MILLIGRAM, QD
     Route: 048
     Dates: start: 20190815
  2. BUMEX [Suspect]
     Active Substance: BUMETANIDE
     Dosage: 1 MG, QD
     Route: 048
     Dates: start: 20220704
  3. BUMEX [Suspect]
     Active Substance: BUMETANIDE
     Dosage: 2 MILLIGRAM, BID
     Route: 048
  4. BUMEX [Suspect]
     Active Substance: BUMETANIDE
     Dosage: 2 MG, QD
     Route: 048
     Dates: start: 20220710

REACTIONS (5)
  - Cardiac failure congestive [Unknown]
  - Hyponatraemia [Recovered/Resolved]
  - Balance disorder [Unknown]
  - Hypovolaemia [Unknown]
  - Asthenia [Unknown]

NARRATIVE: CASE EVENT DATE: 20220705
